FAERS Safety Report 4470420-8 (Version None)
Quarter: 2004Q3

REPORT INFORMATION
  Report Type: 
  Country: None (occurrence: None)
  Receive Date: 20040909
  Receipt Date: 20040624
  Transmission Date: 20050211
  Serious: No
  Sender: FDA-Public Use
  Company Number: US-JNJFOC-20040406370

PATIENT
  Age: 79 Year
  Sex: Male

DRUGS (1)
  1. NATRECOR [Suspect]
     Indication: CARDIAC FAILURE CONGESTIVE
     Dosage: WEEKLY INFUSIONS OVER EIGHT HOURS
     Dates: start: 20040401

REACTIONS (1)
  - ALOPECIA [None]
